FAERS Safety Report 4760953-9 (Version None)
Quarter: 2005Q3

REPORT INFORMATION
  Report Type: 
  Country: None (occurrence: None)
  Receive Date: 20050901
  Receipt Date: 20050826
  Transmission Date: 20060218
  Serious: Yes (Death, Hospitalization)
  Sender: FDA-Public Use
  Company Number: 2005-01826

PATIENT
  Age: 71 Year
  Sex: Male
  Weight: 77.2 kg

DRUGS (2)
  1. VELCADE [Suspect]
     Indication: NON-SMALL CELL LUNG CANCER
     Dosage: 1.00 MG/M2, IV BOLUS
     Route: 040
     Dates: start: 20040229, end: 20040624
  2. GEMCITABINE HYDROCHLORIDE (GEMCITABINE HYDROCHLORIDE) [Suspect]
     Indication: NON-SMALL CELL LUNG CANCER
     Dosage: 1000.00 MG/M2, INTRVENOUS
     Route: 042
     Dates: start: 20040229, end: 20040608

REACTIONS (2)
  - LUNG INFILTRATION [None]
  - PNEUMONITIS [None]
